FAERS Safety Report 9364692 (Version 1)
Quarter: 2013Q2

REPORT INFORMATION
  Report Type: Spontaneous
  Country: US (occurrence: US)
  Receive Date: 20130624
  Receipt Date: 20130624
  Transmission Date: 20140414
  Serious: Yes (Death)
  Sender: FDA-Public Use
  Company Number: US-MYLANLABS-2013S1013201

PATIENT
  Age: 51 Year
  Sex: Male

DRUGS (4)
  1. NALOXONE [Suspect]
     Indication: DRUG DETOXIFICATION
     Route: 065
  2. CLONIDINE [Suspect]
     Indication: DRUG DETOXIFICATION
     Route: 065
  3. PROPOFOL [Suspect]
     Indication: DRUG DETOXIFICATION
     Route: 065
  4. SEVOFLURANE [Suspect]
     Indication: DRUG DETOXIFICATION
     Route: 065

REACTIONS (6)
  - Ventricular fibrillation [Not Recovered/Not Resolved]
  - Hypokalaemia [Not Recovered/Not Resolved]
  - Agitation [Not Recovered/Not Resolved]
  - Hypertension [Not Recovered/Not Resolved]
  - Tachycardia [Not Recovered/Not Resolved]
  - Hypoxic-ischaemic encephalopathy [Fatal]
